FAERS Safety Report 7755478-2 (Version None)
Quarter: 2011Q3

REPORT INFORMATION
  Report Type: 
  Country: None (occurrence: None)
  Receive Date: 20110916
  Receipt Date: 20110912
  Transmission Date: 20111222
  Serious: Yes (Congenital Anomaly, Other)
  Sender: FDA-Public Use
  Company Number: US-PFIZER INC-2011089785

PATIENT
  Sex: Male
  Weight: 3 kg

DRUGS (10)
  1. ZOLOFT [Suspect]
     Indication: MAJOR DEPRESSION
     Dosage: 25 MG, UNK
     Route: 064
     Dates: start: 20070708, end: 20070714
  2. ZOLOFT [Suspect]
     Dosage: 50 MG, UNK
     Route: 064
     Dates: start: 20070714
  3. MAGNESIUM HYDROXIDE TAB [Concomitant]
     Dosage: 30 ML, UNK
     Route: 064
     Dates: start: 20070708
  4. ATARAX [Concomitant]
     Dosage: 25 MG, UNK
     Route: 064
     Dates: start: 20070708
  5. PROMETHAZINE [Concomitant]
     Dosage: 25 MG, UNK
     Route: 064
     Dates: start: 20070708
  6. ZOLOFT [Suspect]
     Dosage: 100 MG, UNK
     Route: 064
     Dates: start: 20070101
  7. TYLENOL-500 [Concomitant]
     Dosage: UNK
     Route: 064
     Dates: start: 20070315
  8. LORTAB [Concomitant]
     Indication: PAIN
     Dosage: 5/500
     Route: 064
     Dates: start: 20070315
  9. TERBUTALINE [Concomitant]
     Dosage: 5 MG, UNK
     Route: 064
     Dates: start: 20070702
  10. LOPERAMIDE [Concomitant]
     Dosage: 2 MG, UNK
     Route: 064
     Dates: start: 20070708

REACTIONS (4)
  - SPEECH DISORDER [None]
  - MATERNAL EXPOSURE DURING PREGNANCY [None]
  - INTRACRANIAL PRESSURE INCREASED [None]
  - CRANIOSYNOSTOSIS [None]
